FAERS Safety Report 10630090 (Version 2)
Quarter: 2014Q4

REPORT INFORMATION
  Report Type: Spontaneous
  Country: US (occurrence: US)
  Receive Date: 20141205
  Receipt Date: 20141205
  Transmission Date: 20150529
  Serious: No
  Sender: FDA-Public Use
  Company Number: US-BRISTOL-MYERS SQUIBB COMPANY-21289798

PATIENT
  Age: 59 Year
  Sex: Female

DRUGS (1)
  1. SPRYCEL [Suspect]
     Active Substance: DASATINIB
     Indication: CHRONIC MYELOID LEUKAEMIA
     Dosage: TABS
     Route: 048
     Dates: start: 201406

REACTIONS (8)
  - Contusion [Unknown]
  - Abdominal distension [Unknown]
  - Arthralgia [Unknown]
  - Rash [Unknown]
  - Dehydration [Unknown]
  - Pruritus [Unknown]
  - Alopecia [Unknown]
  - Abdominal pain upper [Unknown]
